FAERS Safety Report 17919384 (Version 1)
Quarter: 2020Q2

REPORT INFORMATION
  Report Type: Spontaneous
  Country: FR (occurrence: FR)
  Receive Date: 20200619
  Receipt Date: 20200619
  Transmission Date: 20200714
  Serious: Yes (Hospitalization)
  Sender: FDA-Public Use
  Company Number: FR-009507513-2006FRA005047

PATIENT
  Sex: Male

DRUGS (5)
  1. LIPTRUZET [Suspect]
     Active Substance: ATORVASTATIN CALCIUM\EZETIMIBE
     Dosage: UNK (STRENGTH: 10/10 MILLIGRAM)
     Route: 048
  2. LIPTRUZET [Suspect]
     Active Substance: ATORVASTATIN CALCIUM\EZETIMIBE
     Dosage: UNK (STRENGTH: 10/20 MILLIGRAM) (DURATION:APPROXIMATELY 1 YEAR)
     Route: 048
     Dates: start: 2018
  3. KARDEGIC [Suspect]
     Active Substance: ASPIRIN DL-LYSINE
     Dosage: UNK, (DURATION: APPROXIMATELY 1 YEAR)
  4. LIPTRUZET [Suspect]
     Active Substance: ATORVASTATIN CALCIUM\EZETIMIBE
     Dosage: UNK (STRENGTH: 10/20 MILLIGRAM)
     Route: 048
     Dates: start: 2019
  5. LIPOROSA [Suspect]
     Active Substance: EZETIMIBE\ROSUVASTATIN
     Dosage: UNK

REACTIONS (2)
  - Stent placement [Unknown]
  - Adverse event [Unknown]
